FAERS Safety Report 15885694 (Version 1)
Quarter: 2019Q1

REPORT INFORMATION
  Report Type: Report from Study
  Country: US (occurrence: US)
  Receive Date: 20190129
  Receipt Date: 20190129
  Transmission Date: 20190417
  Serious: Yes (Hospitalization)
  Sender: FDA-Public Use
  Company Number: US-TAIHO ONCOLOGY  INC-EU-2019-00114

PATIENT
  Age: 71 Year
  Sex: Male
  Weight: 75.82 kg

DRUGS (14)
  1. TRAZODONE [Concomitant]
     Active Substance: TRAZODONE HYDROCHLORIDE
     Dosage: NI
  2. ISOSORBIDE. [Concomitant]
     Active Substance: ISOSORBIDE
     Dosage: NI
  3. GABAPENTIN. [Concomitant]
     Active Substance: GABAPENTIN
     Dosage: NI
  4. ASPIRIN. [Concomitant]
     Active Substance: ASPIRIN
     Dosage: NI
  5. OMEPRAZOLE. [Concomitant]
     Active Substance: OMEPRAZOLE
     Dosage: NI
  6. ROPINIROLE. [Concomitant]
     Active Substance: ROPINIROLE
     Dosage: NI
  7. MELOXICAM. [Concomitant]
     Active Substance: MELOXICAM
     Dosage: NI
  8. BRILINTA [Concomitant]
     Active Substance: TICAGRELOR
     Dosage: NI
  9. TAMSULOSIN [Concomitant]
     Active Substance: TAMSULOSIN
     Dosage: NI
  10. LONSURF [Suspect]
     Active Substance: TIPIRACIL HYDROCHLORIDE\TRIFLURIDINE
     Indication: PRODUCT USED FOR UNKNOWN INDICATION
     Dosage: CURRENT CYCLE UNKOWN
     Route: 048
     Dates: start: 20181008, end: 2018
  11. CARVEDILOL. [Concomitant]
     Active Substance: CARVEDILOL
     Dosage: NI
  12. NORCO [Concomitant]
     Active Substance: ACETAMINOPHEN\HYDROCODONE BITARTRATE
     Dosage: NI
  13. LIPITOR [Concomitant]
     Active Substance: ATORVASTATIN CALCIUM
     Dosage: NI
  14. OLMESARTAN [Concomitant]
     Active Substance: OLMESARTAN
     Dosage: NI

REACTIONS (2)
  - Drug intolerance [Recovered/Resolved]
  - Pneumonia [Recovered/Resolved]

NARRATIVE: CASE EVENT DATE: 201811
